FAERS Safety Report 24830782 (Version 2)
Quarter: 2025Q3

REPORT INFORMATION
  Report Type: Spontaneous
  Country: JP (occurrence: JP)
  Receive Date: 20250110
  Receipt Date: 20250812
  Transmission Date: 20251021
  Serious: Yes (Life-Threatening, Hospitalization, Other)
  Sender: RANBAXY
  Company Number: JP-SUN PHARMACEUTICAL INDUSTRIES LTD-2024R1-488686

PATIENT
  Age: 30 Year
  Sex: Male

DRUGS (1)
  1. MESALAMINE [Suspect]
     Active Substance: MESALAMINE
     Indication: Colitis ulcerative
     Dosage: 4000 MILLIGRAM, DAILY
     Route: 065

REACTIONS (5)
  - Pericarditis [Recovering/Resolving]
  - Colitis ulcerative [Recovering/Resolving]
  - Pericardial effusion [Recovering/Resolving]
  - Discomfort [Recovering/Resolving]
  - Respiratory distress [Recovering/Resolving]
